FAERS Safety Report 6920985-9 (Version None)
Quarter: 2010Q3

REPORT INFORMATION
  Report Type: 
  Country: None (occurrence: None)
  Receive Date: 20100812
  Receipt Date: 20100729
  Transmission Date: 20110219
  Serious: Yes (Hospitalization)
  Sender: FDA-Public Use
  Company Number: DE-WATSON-2010-09335

PATIENT
  Age: 65 Year
  Sex: Female
  Weight: 50 kg

DRUGS (9)
  1. RAMIPRIL (WATSON LABORATORIES) [Suspect]
     Indication: HYPERTENSION
     Dosage: 5 MG, UNK
     Route: 048
  2. HYDROCHLOROTHIAZIDE [Suspect]
     Indication: HYPERTENSION
     Dosage: 12 1/2 MG, UNK
     Route: 048
     Dates: end: 20080523
  3. ACTONEL [Concomitant]
     Indication: HIP FRACTURE
     Dosage: 30 MG, UNK
     Route: 048
  4. FENTANYL [Concomitant]
     Indication: MULTIPLE SCLEROSIS
     Dosage: 4 MG, 1 EVERY 3 DAYS
     Route: 062
  5. SIRDALUD [Concomitant]
     Indication: MULTIPLE SCLEROSIS
     Dosage: 4 MG, UNK
     Route: 048
  6. METAMIZOLE [Concomitant]
     Indication: MULTIPLE SCLEROSIS
     Dosage: 40-30-0 GGT
     Route: 048
  7. IMUREK                             /00001501/ [Concomitant]
     Indication: MULTIPLE SCLEROSIS
     Dosage: 50 MG, UNK
     Route: 048
  8. MOVICOL                            /01053601/ [Concomitant]
     Indication: CONSTIPATION
     Dosage: 1 DF, UNK
     Route: 048
  9. CLEXANE [Concomitant]
     Indication: HIP FRACTURE
     Dosage: 40 MG, UNK
     Route: 058
     Dates: start: 20080428

REACTIONS (1)
  - SYNCOPE [None]
